FAERS Safety Report 18043840 (Version 1)
Quarter: 2020Q3

REPORT INFORMATION
  Report Type: Spontaneous
  Country: US (occurrence: US)
  Receive Date: 20200718
  Receipt Date: 20200718
  Transmission Date: 20201103
  Serious: No
  Sender: FDA-Public Use
  Company Number: None

PATIENT
  Sex: Female
  Weight: 112.5 kg

DRUGS (7)
  1. DEPO?PROVERA [Suspect]
     Active Substance: MEDROXYPROGESTERONE ACETATE
     Dosage: ?          OTHER FREQUENCY:EVERY 3 MONTHS;?
     Route: 030
  2. ALBUTEROL. [Concomitant]
     Active Substance: ALBUTEROL
  3. VIT D [Concomitant]
     Active Substance: VITAMIN D NOS
  4. FLUOXETINE [Concomitant]
     Active Substance: FLUOXETINE HYDROCHLORIDE
  5. LEVOTHYROXINE. [Concomitant]
     Active Substance: LEVOTHYROXINE
  6. PROBIOTICS [Concomitant]
     Active Substance: PROBIOTICS NOS
  7. VITAMIN B12 [Concomitant]
     Active Substance: CYANOCOBALAMIN

REACTIONS (1)
  - Migraine [None]
